FAERS Safety Report 9300445 (Version 1)
Quarter: 2013Q2

REPORT INFORMATION
  Report Type: Spontaneous
  Country: GB (occurrence: GB)
  Receive Date: 20130521
  Receipt Date: 20130521
  Transmission Date: 20140414
  Serious: Yes (Other)
  Sender: FDA-Public Use
  Company Number: GB-ASTELLAS-2013EU004355

PATIENT
  Sex: Male

DRUGS (2)
  1. VESICARE [Suspect]
     Dosage: UNK
     Route: 065
  2. FINASTERIDE [Concomitant]
     Dosage: UNK
     Route: 065

REACTIONS (3)
  - Dizziness [Unknown]
  - Fall [Unknown]
  - Laceration [Unknown]
